FAERS Safety Report 9146492 (Version 1)
Quarter: 2013Q1

REPORT INFORMATION
  Report Type: Spontaneous
  Country: US (occurrence: US)
  Receive Date: 20130307
  Receipt Date: 20130307
  Transmission Date: 20140127
  Serious: No
  Sender: FDA-Public Use
  Company Number: US-GLAXOSMITHKLINE-A0972009A

PATIENT
  Sex: Female

DRUGS (6)
  1. ROPINIROLE [Suspect]
     Indication: RESTLESS LEGS SYNDROME
     Dosage: 4MG FOUR TIMES PER DAY
     Route: 048
  2. LORAZEPAM [Concomitant]
  3. UNKNOWN DRUG FOR ANXIETY [Concomitant]
  4. ANTI-CHOLESTEROL MEDICATION [Concomitant]
  5. POTASSIUM [Concomitant]
  6. WATER PILL [Concomitant]

REACTIONS (6)
  - Local swelling [Not Recovered/Not Resolved]
  - Weight increased [Unknown]
  - Fatigue [Unknown]
  - Overdose [Unknown]
  - Inappropriate schedule of drug administration [Unknown]
  - Drug ineffective [Unknown]
